FAERS Safety Report 8740307 (Version 2)
Quarter: 2013Q4

REPORT INFORMATION
  Report Type: Spontaneous
  Country: US (occurrence: US)
  Receive Date: 20120823
  Receipt Date: 20131101
  Transmission Date: 20140711
  Serious: No
  Sender: FDA-Public Use
  Company Number: US-009507513-1208USA004220

PATIENT
  Sex: Female

DRUGS (7)
  1. REBETOL [Suspect]
     Route: 048
  2. PEG-INTRON [Suspect]
     Route: 058
  3. INCIVEK [Suspect]
     Dosage: 2 DF, Q8H
     Route: 048
  4. SLOW FE [Concomitant]
  5. LEVOTHYROXINE SODIUM [Concomitant]
  6. LORAZEPAM [Concomitant]
  7. TYLENOL [Concomitant]

REACTIONS (1)
  - Nausea [Unknown]
